FAERS Safety Report 19846577 (Version 1)
Quarter: 2021Q3

REPORT INFORMATION
  Report Type: Spontaneous
  Country: DE (occurrence: DE)
  Receive Date: 20210917
  Receipt Date: 20210917
  Transmission Date: 20211014
  Serious: Yes (Hospitalization)
  Sender: FDA-Public Use
  Company Number: DE-ACCORD-238903

PATIENT
  Age: 82 Year
  Sex: Male
  Weight: 100 kg

DRUGS (6)
  1. RAMIPRIL. [Concomitant]
     Active Substance: RAMIPRIL
     Dosage: 5 MG, 1?0?0?0
  2. TAMSULOSIN/TAMSULOSIN HYDROCHLORIDE [Concomitant]
     Active Substance: TAMSULOSIN HYDROCHLORIDE
     Dosage: 0.4 MG, 0?0?1?0
  3. BISOPROLOL [Concomitant]
     Active Substance: BISOPROLOL
     Dosage: 2.5 MG, 1?0?0?0
  4. APIXABAN [Suspect]
     Active Substance: APIXABAN
     Indication: PRODUCT USED FOR UNKNOWN INDICATION
     Dosage: 5 MG, 1?0?1?0
  5. AMLODIPINE [Concomitant]
     Active Substance: AMLODIPINE BESYLATE
     Dosage: 5 MG, 1?0?0?0
  6. SIMVASTATIN. [Concomitant]
     Active Substance: SIMVASTATIN
     Dosage: 10 MG, 0?0?1?0

REACTIONS (12)
  - Anaemia [Recovering/Resolving]
  - Weight increased [Recovering/Resolving]
  - Hypertension [Recovering/Resolving]
  - Haematuria [Recovering/Resolving]
  - Systemic infection [Recovering/Resolving]
  - Renal impairment [Recovering/Resolving]
  - General physical health deterioration [Recovering/Resolving]
  - Condition aggravated [Recovering/Resolving]
  - Tachypnoea [Recovering/Resolving]
  - Urinary incontinence [Recovering/Resolving]
  - Urogenital haemorrhage [Recovering/Resolving]
  - Abdominal pain [Recovering/Resolving]
